FAERS Safety Report 6428104-2 (Version None)
Quarter: 2009Q4

REPORT INFORMATION
  Report Type: 
  Country: None (occurrence: None)
  Receive Date: 20091105
  Receipt Date: 20091027
  Transmission Date: 20100525
  Serious: Yes (Hospitalization)
  Sender: FDA-Public Use
  Company Number: US-AMGEN-KDL357518

PATIENT
  Sex: Male

DRUGS (5)
  1. ENBREL [Suspect]
     Indication: PSORIATIC ARTHROPATHY
     Route: 058
     Dates: start: 20040601
  2. ENBREL [Suspect]
     Indication: PSORIASIS
  3. ATENOLOL [Concomitant]
  4. AMLODIPINE [Concomitant]
  5. DERMAZINC [Concomitant]
     Route: 061

REACTIONS (10)
  - ARTHRITIS [None]
  - BACK PAIN [None]
  - CALCINOSIS [None]
  - CORONARY ARTERY BYPASS [None]
  - FALL [None]
  - FLUID RETENTION [None]
  - MUSCLE ATROPHY [None]
  - MUSCLE SPASMS [None]
  - MYALGIA [None]
  - PSORIATIC ARTHROPATHY [None]
